FAERS Safety Report 7257626-X (Version None)
Quarter: 2011Q1

REPORT INFORMATION
  Report Type: 
  Country: None (occurrence: None)
  Receive Date: 20110129
  Receipt Date: 20100523
  Transmission Date: 20110831
  Serious: No
  Sender: FDA-Public Use
  Company Number: US-ABBOTT-10P-163-0646748-00

PATIENT
  Age: 60 Year
  Sex: Female

DRUGS (5)
  1. HUMIRA [Suspect]
     Indication: CROHN'S DISEASE
     Dates: start: 20100506
  2. LISIHEXAL COMP [Concomitant]
     Indication: HYPERTENSION
     Dosage: 10/12.5 MG
  3. PHENERGAN [Concomitant]
     Indication: NAUSEA
  4. PROZAC [Concomitant]
     Indication: PRODUCT USED FOR UNKNOWN INDICATION
  5. CLONAZAPAM [Concomitant]
     Indication: ANXIETY

REACTIONS (2)
  - DIARRHOEA [None]
  - NAUSEA [None]
